FAERS Safety Report 11294549 (Version 1)
Quarter: 2015Q3

REPORT INFORMATION
  Report Type: Spontaneous
  Country: FR (occurrence: None)
  Receive Date: 20150721
  Receipt Date: 20150721
  Transmission Date: 20151125
  Serious: Yes (Death, Life-Threatening)
  Sender: FDA-Public Use
  Company Number: FR-H14001-15-01356

PATIENT
  Age: 65 Year
  Sex: Female
  Weight: 65 kg

DRUGS (8)
  1. ONDANSETRON [Concomitant]
     Active Substance: ONDANSETRON
  2. SODIUM BICARBONATE. [Concomitant]
     Active Substance: SODIUM BICARBONATE
  3. PYOSTACINE (PRISTINAYMYCIN) [Concomitant]
  4. CERUBIDINE [Suspect]
     Active Substance: DAUNORUBICIN HYDROCHLORIDE
     Indication: ACUTE MYELOID LEUKAEMIA
     Route: 042
     Dates: start: 20081031, end: 20081102
  5. CIFLOX (CIPROFLOXACIN) [Concomitant]
  6. ARACYTINE (CYTARABINE) (UNKNOWN) (CYTARABINE)? [Suspect]
     Active Substance: CYTARABINE
     Indication: ACUTE MYELOID LEUKAEMIA
     Route: 042
     Dates: start: 20081031, end: 20081106
  7. TRIFLUCAN (FLUCONAZOLE) (FLUCONAZOLE) [Concomitant]
     Active Substance: FLUCONAZOLE
  8. VANCOMYCIN [Concomitant]
     Active Substance: VANCOMYCIN

REACTIONS (12)
  - Staphylococcus test positive [None]
  - Purulence [None]
  - Drug resistance [None]
  - Lung disorder [None]
  - Septic shock [None]
  - White blood cell count decreased [None]
  - Cardiac failure congestive [None]
  - Pseudomonas test positive [None]
  - Hypoxia [None]
  - Haemodynamic instability [None]
  - Acute respiratory distress syndrome [None]
  - Bronchopulmonary aspergillosis [None]

NARRATIVE: CASE EVENT DATE: 20081115
